FAERS Safety Report 5410754-3 (Version None)
Quarter: 2007Q3

REPORT INFORMATION
  Report Type: 
  Country: None (occurrence: None)
  Receive Date: 20070810
  Receipt Date: 20070228
  Transmission Date: 20080115
  Serious: No
  Sender: FDA-Public Use
  Company Number: A0641244A

PATIENT
  Sex: Female

DRUGS (1)
  1. PAXIL CR [Suspect]
     Dosage: 12.5MG SEE DOSAGE TEXT
     Route: 048
     Dates: start: 20070201

REACTIONS (2)
  - AGITATION [None]
  - DRUG ADMINISTRATION ERROR [None]
